FAERS Safety Report 9325272 (Version 25)
Quarter: 2018Q2

REPORT INFORMATION
  Report Type: Report from Study
  Country: CA (occurrence: CA)
  Receive Date: 20130604
  Receipt Date: 20180426
  Transmission Date: 20180711
  Serious: Yes (Hospitalization, Other)
  Sender: FDA-Public Use
  Company Number: CA-ROCHE-1229027

PATIENT
  Age: 61 Year
  Sex: Female
  Weight: 74 kg

DRUGS (33)
  1. RITUXAN [Suspect]
     Active Substance: RITUXIMAB
     Indication: RHEUMATOID ARTHRITIS
     Dosage: DATE OF LAST INFUSION: 26/FEB/2016
     Route: 042
     Dates: start: 20130514
  2. DIPHENHYDRAMINE HCL [Concomitant]
     Active Substance: DIPHENHYDRAMINE HYDROCHLORIDE
     Indication: PREMEDICATION
     Route: 048
     Dates: start: 20130514
  3. CLONAZEPAM. [Concomitant]
     Active Substance: CLONAZEPAM
     Route: 065
  4. NITRO PATCH [Concomitant]
     Active Substance: NITROGLYCERIN
     Route: 065
  5. OXYGEN. [Concomitant]
     Active Substance: OXYGEN
  6. IMOVANE [Concomitant]
     Active Substance: ZOPICLONE
  7. SPIRIVA [Concomitant]
     Active Substance: TIOTROPIUM BROMIDE MONOHYDRATE
     Route: 065
  8. PREDNISONE. [Concomitant]
     Active Substance: PREDNISONE
     Route: 065
  9. CODEINE [Concomitant]
     Active Substance: CODEINE
     Route: 065
  10. LEFLUNOMIDE. [Concomitant]
     Active Substance: LEFLUNOMIDE
  11. NITROGLYCERIN. [Concomitant]
     Active Substance: NITROGLYCERIN
  12. VENTOLIN [Concomitant]
     Active Substance: ALBUTEROL SULFATE
     Route: 065
  13. ZOPLICONE [Concomitant]
     Active Substance: ZOPICLONE
     Route: 065
  14. DIGOXIN. [Concomitant]
     Active Substance: DIGOXIN
  15. RITUXAN [Suspect]
     Active Substance: RITUXIMAB
     Route: 042
     Dates: start: 20160201
  16. ACETAMINOPHEN. [Concomitant]
     Active Substance: ACETAMINOPHEN
     Indication: PREMEDICATION
     Route: 048
     Dates: start: 20130514
  17. ARAVA [Concomitant]
     Active Substance: LEFLUNOMIDE
     Route: 065
  18. RAMIPRIL. [Concomitant]
     Active Substance: RAMIPRIL
     Route: 065
  19. FUROSEMIDE. [Concomitant]
     Active Substance: FUROSEMIDE
  20. SALBUTAMOL [Concomitant]
     Active Substance: ALBUTEROL
  21. WARFARIN [Concomitant]
     Active Substance: WARFARIN
     Dosage: 2MG/3MG
     Route: 065
  22. TAZOCIN [Suspect]
     Active Substance: PIPERACILLIN SODIUM\TAZOBACTAM SODIUM
     Indication: INFECTION
     Route: 042
  23. CIPRALEX [Concomitant]
     Active Substance: ESCITALOPRAM OXALATE
     Route: 065
  24. LASIX [Concomitant]
     Active Substance: FUROSEMIDE
     Route: 065
  25. TYLENOL WITH CODEINE [Concomitant]
     Active Substance: ACETAMINOPHEN\CODEINE PHOSPHATE
     Route: 065
  26. AMLODIPINE [Concomitant]
     Active Substance: AMLODIPINE BESYLATE
     Route: 065
  27. NEXIUM [Concomitant]
     Active Substance: ESOMEPRAZOLE MAGNESIUM
     Route: 065
  28. ADVAIR HFA [Concomitant]
     Active Substance: FLUTICASONE PROPIONATE\SALMETEROL XINAFOATE
     Route: 065
  29. METHYLPREDNISOLONE. [Concomitant]
     Active Substance: METHYLPREDNISOLONE
     Indication: PREMEDICATION
     Route: 042
     Dates: start: 20130514
  30. MONTELUKAST [Concomitant]
     Active Substance: MONTELUKAST SODIUM
     Indication: SEASONAL ALLERGY
  31. XARELTO [Concomitant]
     Active Substance: RIVAROXABAN
  32. LORAZEPAM. [Concomitant]
     Active Substance: LORAZEPAM
     Route: 065
  33. COUMADIN [Concomitant]
     Active Substance: WARFARIN SODIUM

REACTIONS (49)
  - Hepatitis [Not Recovered/Not Resolved]
  - Balance disorder [Recovered/Resolved]
  - Malaise [Unknown]
  - Arthropathy [Unknown]
  - Musculoskeletal stiffness [Unknown]
  - Peripheral swelling [Not Recovered/Not Resolved]
  - Heart rate increased [Unknown]
  - Nausea [Recovered/Resolved]
  - Localised infection [Recovered/Resolved]
  - Blood pressure systolic increased [Unknown]
  - Neck pain [Not Recovered/Not Resolved]
  - Infusion related reaction [Unknown]
  - Weight increased [Unknown]
  - Musculoskeletal disorder [Unknown]
  - Blood immunoglobulin G decreased [Unknown]
  - Nausea [Recovered/Resolved]
  - Blood pressure increased [Recovered/Resolved]
  - Limb deformity [Unknown]
  - Asthenia [Not Recovered/Not Resolved]
  - Nausea [Unknown]
  - Vomiting [Unknown]
  - Blood pressure systolic abnormal [Unknown]
  - Blood pressure diastolic abnormal [Unknown]
  - Hypotension [Not Recovered/Not Resolved]
  - Renal cancer [Unknown]
  - Benign breast neoplasm [Not Recovered/Not Resolved]
  - C-reactive protein increased [Unknown]
  - Pain [Unknown]
  - Influenza like illness [Not Recovered/Not Resolved]
  - Influenza [Unknown]
  - Benign neoplasm of thyroid gland [Not Recovered/Not Resolved]
  - Rheumatoid arthritis [Not Recovered/Not Resolved]
  - Influenza [Unknown]
  - Weight decreased [Unknown]
  - Cellulitis [Unknown]
  - Musculoskeletal discomfort [Unknown]
  - Blood pressure diastolic abnormal [Unknown]
  - Blood pressure increased [Unknown]
  - Oxygen saturation abnormal [Recovered/Resolved]
  - Fall [Unknown]
  - Diarrhoea [Recovering/Resolving]
  - Abdominal discomfort [Unknown]
  - Retching [Recovered/Resolved]
  - International normalised ratio increased [Recovered/Resolved]
  - Arthralgia [Unknown]
  - Joint swelling [Recovering/Resolving]
  - Grip strength decreased [Not Recovered/Not Resolved]
  - Fatigue [Unknown]
  - Respiratory rate increased [Unknown]

NARRATIVE: CASE EVENT DATE: 20130515
